FAERS Safety Report 8357686-9 (Version None)
Quarter: 2012Q2

REPORT INFORMATION
  Report Type: 
  Country: None (occurrence: None)
  Receive Date: 20120514
  Receipt Date: 20120511
  Transmission Date: 20120825
  Serious: Yes (Other)
  Sender: FDA-Public Use
  Company Number: US-PFIZER INC-2012115728

PATIENT
  Sex: Male

DRUGS (9)
  1. NEURONTIN [Suspect]
     Dosage: 200 MG, UNK
  2. NEURONTIN [Suspect]
     Dosage: 300 MG, 3X/DAY
  3. NEURONTIN [Suspect]
     Dosage: 300 MG, 3X/DAY
  4. NEURONTIN [Suspect]
     Dosage: UNK
  5. NEURONTIN [Suspect]
     Dosage: 400 MG, DAILY
  6. NEURONTIN [Suspect]
     Dosage: 200 MG, UNK
  7. NEURONTIN [Suspect]
     Dosage: 200 MG, 3X/DAY
  8. NEURONTIN [Suspect]
     Dosage: 100 MG, 3X/DAY
  9. NEURONTIN [Suspect]
     Dosage: 200 MG IN MORNING AND 300 MG AT NIGHT

REACTIONS (1)
  - NERVOUS SYSTEM DISORDER [None]
